FAERS Safety Report 5484204-5 (Version None)
Quarter: 2007Q4

REPORT INFORMATION
  Report Type: 
  Country: None (occurrence: None)
  Receive Date: 20071012
  Receipt Date: 20071005
  Transmission Date: 20080405
  Serious: Yes (Other)
  Sender: FDA-Public Use
  Company Number: US-ASTRAZENECA-2007UW23288

PATIENT
  Age: 60 Year
  Sex: Female
  Weight: 63.5 kg

DRUGS (2)
  1. NEXIUM [Suspect]
     Indication: GASTRIC ULCER
     Route: 048
     Dates: start: 20071005
  2. PREFEST [Concomitant]

REACTIONS (5)
  - CONFUSIONAL STATE [None]
  - CONVULSION [None]
  - DIZZINESS [None]
  - FATIGUE [None]
  - PAIN [None]
